FAERS Safety Report 4295793-0 (Version None)
Quarter: 2004Q1

REPORT INFORMATION
  Report Type: 
  Country: None (occurrence: None)
  Receive Date: 20040216
  Receipt Date: 20031104
  Transmission Date: 20041129
  Serious: Yes (Life-Threatening, Hospitalization, Disabling, Other)
  Sender: FDA-Public Use
  Company Number: US-GLAXOSMITHKLINE-A0432887A

PATIENT
  Age: 14 Year
  Sex: Female
  Weight: 41.8 kg

DRUGS (2)
  1. LAMICTAL [Suspect]
     Indication: EPILEPSY
     Dosage: 50MG TWICE PER DAY
     Route: 048
     Dates: start: 20030924, end: 20031001
  2. KEPPRA [Concomitant]

REACTIONS (7)
  - EYE SWELLING [None]
  - MUCOSAL INFLAMMATION [None]
  - PRURITUS [None]
  - PYREXIA [None]
  - RASH [None]
  - SKIN BURNING SENSATION [None]
  - STEVENS-JOHNSON SYNDROME [None]
